FAERS Safety Report 5079534-5 (Version None)
Quarter: 2006Q3

REPORT INFORMATION
  Report Type: 
  Country: None (occurrence: None)
  Receive Date: 20060814
  Receipt Date: 20060412
  Transmission Date: 20061208
  Serious: No
  Sender: FDA-Public Use
  Company Number: US-BRISTOL-MYERS SQUIBB COMPANY-13344528

PATIENT

DRUGS (1)
  1. GLYBURIDE + METFORMIN HCL TABS [Suspect]
     Dosage: DOSAGE FORM = 2.5 MG/500 MG

REACTIONS (1)
  - BLOOD GLUCOSE INCREASED [None]
